FAERS Safety Report 8602454 (Version 3)
Quarter: 2012Q4

REPORT INFORMATION
  Report Type: 
  Country: TR (occurrence: TR)
  Receive Date: 20120607
  Receipt Date: 20120926
  Transmission Date: 20130627
  Serious: Yes (Life-Threatening, Hospitalization, Other)
  Sender: FDA-Public Use
  Company Number: TR-AMGEN-TURSP2012034595

PATIENT
  Age: 74 Year
  Sex: Male

DRUGS (4)
  1. ENBREL [Suspect]
     Indication: RHEUMATOID ARTHRITIS
     Dosage: 50 mg, qwk
     Route: 058
     Dates: start: 200611, end: 20120314
  2. DELTACORTRIL [Suspect]
     Indication: RHEUMATOID ARTHRITIS
     Dosage: 5 mg, 1x/day
     Route: 048
     Dates: start: 200611
  3. METHOTREXATE SODIUM [Suspect]
     Dosage: 12.5 mg, weekly
     Route: 048
     Dates: start: 200611
  4. FOLBIOL [Concomitant]
     Indication: RHEUMATOID ARTHRITIS
     Dosage: 10 mg, weekly
     Dates: start: 200611

REACTIONS (1)
  - B-cell lymphoma [Not Recovered/Not Resolved]
